FAERS Safety Report 8603186-8 (Version None)
Quarter: 2012Q3

REPORT INFORMATION
  Report Type: 
  Country: None (occurrence: None)
  Receive Date: 20120817
  Receipt Date: 20120816
  Transmission Date: 20120928
  Serious: Yes (Other)
  Sender: FDA-Public Use
  Company Number: US-ROCHE-784957

PATIENT

DRUGS (2)
  1. ACCUTANE [Suspect]
     Indication: PRODUCT USED FOR UNKNOWN INDICATION
     Route: 065
     Dates: start: 19990101, end: 20000101
  2. ACCUTANE [Suspect]
     Route: 065
     Dates: start: 20000101, end: 20010101

REACTIONS (2)
  - COLONIC POLYP [None]
  - INFLAMMATORY BOWEL DISEASE [None]
